FAERS Safety Report 14581126 (Version 2)
Quarter: 2018Q2

REPORT INFORMATION
  Report Type: Spontaneous
  Country: US (occurrence: US)
  Receive Date: 20180228
  Receipt Date: 20180413
  Transmission Date: 20180711
  Serious: No
  Sender: FDA-Public Use
  Company Number: US-PFIZER INC-2018080357

PATIENT
  Age: 51 Year
  Sex: Female

DRUGS (7)
  1. LYRICA [Suspect]
     Active Substance: PREGABALIN
     Dosage: 75 MG, TWICE A DAY
     Dates: start: 20170201, end: 20170205
  2. HYDROCODONE [Concomitant]
     Active Substance: HYDROCODONE
     Dosage: UNK UNK, AS NEEDED (HYDROCODONE 5-PARACETAMOL 325)
     Dates: start: 201602
  3. MELOXICAM. [Concomitant]
     Active Substance: MELOXICAM
     Dosage: 15 MG, ONCE A DAY
     Dates: start: 20170105, end: 20170221
  4. DICLOFENAC DR [Concomitant]
     Active Substance: DICLOFENAC SODIUM
     Dosage: 75 MG, TWICE A DAY
     Dates: start: 20170221
  5. LYRICA [Suspect]
     Active Substance: PREGABALIN
     Dosage: 100 MG, THREE TIMES A DAY
     Dates: start: 20170206, end: 20170215
  6. LYRICA [Suspect]
     Active Substance: PREGABALIN
     Dosage: 200 MG, TWICE A DAY
     Dates: start: 20170216, end: 20170224
  7. CYCLOBENZAPRINE HCL [Concomitant]
     Active Substance: CYCLOBENZAPRINE HYDROCHLORIDE
     Dosage: 10 MG, 1 TABLET UP TO 3 TIMES DAY
     Dates: start: 20171019

REACTIONS (7)
  - Head discomfort [Recovering/Resolving]
  - Pain [Not Recovered/Not Resolved]
  - Musculoskeletal pain [Not Recovered/Not Resolved]
  - Neck pain [Not Recovered/Not Resolved]
  - Insomnia [Unknown]
  - Headache [Not Recovered/Not Resolved]
  - Tinnitus [Recovered/Resolved]
